FAERS Safety Report 9659475 (Version 4)
Quarter: 2013Q4

REPORT INFORMATION
  Report Type: Report from Study
  Country: CA (occurrence: CA)
  Receive Date: 20131031
  Receipt Date: 20131224
  Transmission Date: 20140711
  Serious: Yes (Death, Other)
  Sender: FDA-Public Use
  Company Number: PHHY2013CA074551

PATIENT
  Age: 57 Year
  Sex: Male

DRUGS (1)
  1. SANDOSTATIN LAR [Suspect]
     Indication: NEUROENDOCRINE CARCINOMA
     Dosage: 30 MG, EVERY FOUR WEEKS
     Route: 030
     Dates: start: 20130510, end: 20131122

REACTIONS (8)
  - Death [Fatal]
  - Tricuspid valve disease [Unknown]
  - Cystitis [Unknown]
  - Oedema peripheral [Unknown]
  - Gait disturbance [Unknown]
  - Joint swelling [Unknown]
  - Abnormal dreams [Unknown]
  - Fatigue [Unknown]
